FAERS Safety Report 11471267 (Version 2)
Quarter: 2015Q3

REPORT INFORMATION
  Report Type: Spontaneous
  Country: US (occurrence: US)
  Receive Date: 20150903
  Receipt Date: 20150903
  Transmission Date: 20151125
  Serious: No
  Sender: FDA-Public Use
  Company Number: US-ELI_LILLY_AND_COMPANY-US201112004877

PATIENT
  Age: 83 Year
  Sex: Female

DRUGS (1)
  1. CYMBALTA [Suspect]
     Active Substance: DULOXETINE HYDROCHLORIDE
     Indication: FIBROMYALGIA
     Dosage: 60 MG, QD
     Dates: start: 201107, end: 201112

REACTIONS (11)
  - Swelling face [Unknown]
  - Weight increased [Unknown]
  - Fluid retention [Unknown]
  - Peripheral swelling [Unknown]
  - Urine output decreased [Unknown]
  - Headache [Unknown]
  - Nausea [Unknown]
  - Hot flush [Unknown]
  - Pruritus [Unknown]
  - Flushing [Unknown]
  - Hyperhidrosis [Unknown]
